FAERS Safety Report 4546675-8 (Version None)
Quarter: 2005Q1

REPORT INFORMATION
  Report Type: 
  Country: None (occurrence: None)
  Receive Date: 20050105
  Receipt Date: 20041221
  Transmission Date: 20050727
  Serious: Yes (Other)
  Sender: FDA-Public Use
  Company Number: 000#8#2004-00807

PATIENT

DRUGS (2)
  1. NITROGLYCERIN [Suspect]
     Indication: MIGRAINE
     Dosage: 1.500 NG/KG/MIN
     Route: 041
  2. SB-220453 [Suspect]
     Indication: MIGRAINE PROPHYLAXIS
     Dosage: 40 MG
     Route: 048

REACTIONS (3)
  - DRUG INTERACTION [None]
  - HYPOTENSION [None]
  - LOSS OF CONSCIOUSNESS [None]
